FAERS Safety Report 8012141-0 (Version None)
Quarter: 2011Q4

REPORT INFORMATION
  Report Type: 
  Country: None (occurrence: None)
  Receive Date: 20111228
  Receipt Date: 20111226
  Transmission Date: 20120403
  Serious: Yes (Other)
  Sender: FDA-Public Use
  Company Number: FR-PFIZER INC-2011313626

PATIENT
  Age: 39 Year
  Sex: Female

DRUGS (1)
  1. VARENICLINE TARTRATE [Suspect]
     Dosage: UNK
     Route: 048
     Dates: start: 20111014, end: 20111029

REACTIONS (3)
  - HALLUCINATION [None]
  - LOSS OF CONSCIOUSNESS [None]
  - FEELING ABNORMAL [None]
